FAERS Safety Report 4369133-2 (Version None)
Quarter: 2004Q2

REPORT INFORMATION
  Report Type: 
  Country: None (occurrence: None)
  Receive Date: 20040527
  Receipt Date: 20040514
  Transmission Date: 20050107
  Serious: Yes (Other)
  Sender: FDA-Public Use
  Company Number: 2004032749

PATIENT
  Age: 53 Year
  Sex: Female
  Weight: 56.246 kg

DRUGS (6)
  1. NEURONTIN [Suspect]
     Indication: MIGRAINE
     Dosage: 600 MG (300 MG, 2 IN 1 D), ORAL
     Route: 048
  2. CLONAZEPAM [Concomitant]
  3. RALOXIFENE HCL [Concomitant]
  4. ESOMEPRAZOLE (ESOMEPRAZOLE) [Concomitant]
  5. FEXOFENADINE HYDROCHLORIDE [Concomitant]
  6. ROFECOXIB [Concomitant]

REACTIONS (6)
  - BALANCE DISORDER [None]
  - COORDINATION ABNORMAL [None]
  - DYSARTHRIA [None]
  - FALL [None]
  - HEAD INJURY [None]
  - LOSS OF CONSCIOUSNESS [None]
